FAERS Safety Report 13401907 (Version 1)
Quarter: 2017Q2

REPORT INFORMATION
  Report Type: Spontaneous
  Country: US (occurrence: US)
  Receive Date: 20170404
  Receipt Date: 20170404
  Transmission Date: 20170830
  Serious: Yes (Death)
  Sender: FDA-Public Use
  Company Number: US-ALLERGAN-1712723US

PATIENT
  Age: 4 Day
  Sex: Male

DRUGS (4)
  1. ESCITALOPRAM OXALATE UNK [Suspect]
     Active Substance: ESCITALOPRAM OXALATE
     Indication: MATERNAL EXPOSURE TIMING UNSPECIFIED
     Route: 064
  2. PROGESTERONE UNK [Suspect]
     Active Substance: PROGESTERONE
     Indication: MATERNAL EXPOSURE TIMING UNSPECIFIED
     Route: 064
  3. SERTRALINE [Suspect]
     Active Substance: SERTRALINE HYDROCHLORIDE
     Indication: MATERNAL EXPOSURE TIMING UNSPECIFIED
     Route: 064
  4. ONDANSETRON [Suspect]
     Active Substance: ONDANSETRON
     Indication: MATERNAL EXPOSURE TIMING UNSPECIFIED
     Route: 064

REACTIONS (5)
  - Human herpesvirus 6 infection [Fatal]
  - Congestive cardiomyopathy [Fatal]
  - Cardiac failure [Fatal]
  - Foetal exposure during pregnancy [Unknown]
  - Multiple organ dysfunction syndrome [Fatal]
